FAERS Safety Report 10427137 (Version 1)
Quarter: 2014Q3

REPORT INFORMATION
  Report Type: Spontaneous
  Country: US (occurrence: US)
  Receive Date: 20140903
  Receipt Date: 20140903
  Transmission Date: 20150326
  Serious: No
  Sender: FDA-Public Use
  Company Number: US-PFIZER INC-2014244450

PATIENT
  Age: 25 Year
  Sex: Male
  Weight: 81.63 kg

DRUGS (1)
  1. ADVIL [Suspect]
     Active Substance: IBUPROFEN
     Indication: PAIN
     Dosage: 200 MG ONCE A DAY
     Route: 048
     Dates: start: 20140831, end: 20140831

REACTIONS (3)
  - Hypersensitivity [Unknown]
  - Eye swelling [Unknown]
  - Throat irritation [Unknown]

NARRATIVE: CASE EVENT DATE: 20140831
